FAERS Safety Report 7702974-X (Version None)
Quarter: 2011Q3

REPORT INFORMATION
  Report Type: 
  Country: None (occurrence: None)
  Receive Date: 20110823
  Receipt Date: 20110810
  Transmission Date: 20111222
  Serious: Yes (Other)
  Sender: FDA-Public Use
  Company Number: PL-UCBSA-015517

PATIENT
  Sex: Female

DRUGS (2)
  1. ACID FOLIC [Concomitant]
     Indication: PROPHYLAXIS
     Dosage: 1 X 5 MG
     Route: 048
     Dates: start: 20080101
  2. KEPPRA [Suspect]
     Indication: EPILEPSY
     Dosage: 750-0-1000 MG
     Route: 048
     Dates: start: 20090101

REACTIONS (3)
  - MULTIPLE PREGNANCY [None]
  - PREGNANCY [None]
  - CAESAREAN SECTION [None]
